FAERS Safety Report 6472960-9 (Version None)
Quarter: 2009Q4

REPORT INFORMATION
  Report Type: 
  Country: None (occurrence: None)
  Receive Date: 20091204
  Receipt Date: 20091123
  Transmission Date: 20100525
  Serious: Yes (Other)
  Sender: FDA-Public Use
  Company Number: LB-RANBAXY-2009RR-29478

PATIENT
  Age: 43 Year
  Sex: Male

DRUGS (6)
  1. CITALOPRAM HYDROBROMIDE [Suspect]
     Indication: DEPRESSION
     Dosage: 10 MG, UNK
  2. FLUOXETINE [Suspect]
     Indication: MIGRAINE
     Dosage: 20 MG, UNK
  3. FLUOXETINE [Suspect]
     Indication: DEPRESSION
     Dosage: 40 MG, UNK
  4. DIHYDROERGOTAMINE MESYLATE [Concomitant]
     Indication: MIGRAINE
  5. AMITRIPTYLINE [Concomitant]
  6. VALPROIC ACID [Concomitant]

REACTIONS (2)
  - CAROTIDYNIA [None]
  - MUSCULOSKELETAL CHEST PAIN [None]
